FAERS Safety Report 5537006-5 (Version None)
Quarter: 2007Q4

REPORT INFORMATION
  Report Type: 
  Country: None (occurrence: None)
  Receive Date: 20071207
  Receipt Date: 20071128
  Transmission Date: 20080405
  Serious: Yes (Other)
  Sender: FDA-Public Use
  Company Number: US-JNJFOC-20071200250

PATIENT
  Sex: Female
  Weight: 68.49 kg

DRUGS (3)
  1. DURAGESIC-100 [Suspect]
     Indication: PAIN
     Route: 062
  2. CYMBALTA [Concomitant]
     Indication: STRESS
     Route: 048
  3. REQUIP [Concomitant]
     Route: 048

REACTIONS (4)
  - APPLICATION SITE IRRITATION [None]
  - APPLICATION SITE REACTION [None]
  - RASH GENERALISED [None]
  - SKIN LESION [None]
